FAERS Safety Report 6596750-1 (Version None)
Quarter: 2010Q1

REPORT INFORMATION
  Report Type: 
  Country: None (occurrence: None)
  Receive Date: 20100223
  Receipt Date: 20100217
  Transmission Date: 20100710
  Serious: Yes (Hospitalization)
  Sender: FDA-Public Use
  Company Number: FR-MERCK-1002FRA00085

PATIENT
  Age: 80 Year
  Sex: Male

DRUGS (9)
  1. VYTORIN [Suspect]
     Indication: HYPERCHOLESTEROLAEMIA
     Route: 048
  2. FLUINDIONE [Suspect]
     Indication: JOINT ARTHROPLASTY
     Route: 048
     Dates: start: 20080226, end: 20090227
  3. ASPIRIN LYSINE [Suspect]
     Route: 048
  4. LEUCOVORIN CALCIUM [Concomitant]
     Route: 048
  5. PANTOPRAZOLE SODIUM [Concomitant]
     Route: 048
  6. SOTALOL HYDROCHLORIDE [Concomitant]
     Indication: VENTRICULAR TACHYCARDIA
     Route: 048
  7. MESALAMINE [Concomitant]
     Indication: CROHN'S DISEASE
     Route: 048
  8. AMLODIPINE [Concomitant]
     Indication: HYPERTENSION
     Route: 048
  9. INDAPAMIDE AND PERINDOPRIL ARGININE [Concomitant]
     Route: 048

REACTIONS (1)
  - RECTAL HAEMORRHAGE [None]
